FAERS Safety Report 6541094-7 (Version None)
Quarter: 2010Q1

REPORT INFORMATION
  Report Type: 
  Country: None (occurrence: None)
  Receive Date: 20100118
  Receipt Date: 20100113
  Transmission Date: 20100710
  Serious: Yes (Hospitalization, Other)
  Sender: FDA-Public Use
  Company Number: AU-BRISTOL-MYERS SQUIBB COMPANY-14920441

PATIENT
  Age: 70 Year
  Sex: Female

DRUGS (9)
  1. CARBOPLATIN [Suspect]
     Indication: LUNG CANCER METASTATIC
  2. PACLITAXEL [Suspect]
     Indication: LUNG CANCER METASTATIC
  3. BEVACIZUMAB [Suspect]
     Indication: LUNG CANCER METASTATIC
     Route: 042
  4. CARBAMAZEPINE [Concomitant]
  5. PERINDOPRIL [Concomitant]
     Indication: HYPERTENSION
  6. FELODIPINE [Concomitant]
  7. OMEPRAZOLE [Concomitant]
  8. LEVOTHYROXINE SODIUM [Concomitant]
  9. ALBUTEROL [Concomitant]

REACTIONS (4)
  - HYPERTENSION [None]
  - PARAESTHESIA [None]
  - QUADRIPARESIS [None]
  - SPINAL CORD INFARCTION [None]
